FAERS Safety Report 14167975 (Version 1)
Quarter: 2017Q4

REPORT INFORMATION
  Report Type: Spontaneous
  Country: US (occurrence: US)
  Receive Date: 20171107
  Receipt Date: 20171107
  Transmission Date: 20180321
  Serious: No
  Sender: FDA-Public Use
  Company Number: US-SA-2017SA152560

PATIENT
  Age: 61 Year
  Sex: Male

DRUGS (2)
  1. TOUJEO [Suspect]
     Active Substance: INSULIN GLARGINE
     Indication: TYPE 2 DIABETES MELLITUS
     Dosage: DOSE- 30 - 50 UNITS?FREQ - QPM
     Route: 058
     Dates: start: 201702
  2. SOLOSTAR [Suspect]
     Active Substance: DEVICE
     Indication: TYPE 2 DIABETES MELLITUS
     Dosage: FREQ- QPM
     Dates: start: 201702

REACTIONS (2)
  - Blood glucose increased [Unknown]
  - Drug ineffective [Unknown]
